FAERS Safety Report 6408965-3 (Version None)
Quarter: 2009Q4

REPORT INFORMATION
  Report Type: 
  Country: None (occurrence: None)
  Receive Date: 20091021
  Receipt Date: 20091020
  Transmission Date: 20100525
  Serious: Yes (Hospitalization, Other)
  Sender: FDA-Public Use
  Company Number: FR-ROXANE LABORATORIES, INC.-2009-RO-01075RO

PATIENT
  Age: 75 Year
  Sex: Male

DRUGS (3)
  1. LEVETIRACETAM [Suspect]
     Indication: CONVULSION
  2. CLOPIDOGREL [Suspect]
     Dosage: 75 MG
  3. LAMOTRIGINE [Concomitant]
     Indication: CONVULSION

REACTIONS (2)
  - CEREBRAL HAEMORRHAGE [None]
  - PLATELET FUNCTION TEST ABNORMAL [None]
